FAERS Safety Report 8007009-X (Version None)
Quarter: 2011Q4

REPORT INFORMATION
  Report Type: 
  Country: None (occurrence: None)
  Receive Date: 20111227
  Receipt Date: 20111222
  Transmission Date: 20120403
  Serious: No
  Sender: FDA-Public Use
  Company Number: US-JNJFOC-20111210442

PATIENT
  Sex: Male
  Weight: 105.24 kg

DRUGS (2)
  1. PERCOCET [Concomitant]
     Indication: BACK PAIN
     Dosage: 10/325MG
     Route: 048
  2. FENTANYL [Suspect]
     Indication: BACK PAIN
     Route: 062
     Dates: start: 20111101

REACTIONS (1)
  - WRONG TECHNIQUE IN DRUG USAGE PROCESS [None]
